FAERS Safety Report 9903685 (Version 2)
Quarter: 2014Q1

REPORT INFORMATION
  Report Type: Spontaneous
  Country: CA (occurrence: CA)
  Receive Date: 20140217
  Receipt Date: 20140305
  Transmission Date: 20141002
  Serious: Yes (Death, Other)
  Sender: FDA-Public Use
  Company Number: CA-GILEAD-2014-0094385

PATIENT
  Sex: Male

DRUGS (1)
  1. VIREAD [Suspect]
     Indication: HEPATITIS B
     Dosage: 300 MG, UNK
     Route: 048
     Dates: start: 20130402

REACTIONS (1)
  - Hepatic cancer [Fatal]
